FAERS Safety Report 13263642 (Version 1)
Quarter: 2017Q1

REPORT INFORMATION
  Report Type: Spontaneous
  Country: US (occurrence: US)
  Receive Date: 20170223
  Receipt Date: 20170223
  Transmission Date: 20170428
  Serious: No
  Sender: FDA-Public Use
  Company Number: US-HORIZON-DUE-0047-2017

PATIENT
  Age: 63 Year
  Sex: Male

DRUGS (3)
  1. OMEPRAZOLE. [Concomitant]
     Active Substance: OMEPRAZOLE
  2. DUEXIS [Suspect]
     Active Substance: FAMOTIDINE\IBUPROFEN
     Indication: ARTHROPATHY
     Dosage: TID
  3. NAPROSYN [Concomitant]
     Active Substance: NAPROXEN
     Dosage: BID

REACTIONS (1)
  - Drug ineffective [Unknown]
